FAERS Safety Report 26071651 (Version 1)
Quarter: 2025Q4

REPORT INFORMATION
  Report Type: Spontaneous
  Country: US (occurrence: US)
  Receive Date: 20251120
  Receipt Date: 20251120
  Transmission Date: 20260117
  Serious: No
  Sender: Harrow Health
  Company Number: US-HARROW-HAR-2025-US-00721

PATIENT
  Sex: Female

DRUGS (1)
  1. MAXITROL [Suspect]
     Active Substance: DEXAMETHASONE\NEOMYCIN SULFATE\POLYMYXIN B SULFATE
     Route: 047
     Dates: start: 202508

REACTIONS (5)
  - Eye pain [Not Recovered/Not Resolved]
  - Therapy interrupted [Unknown]
  - Product packaging issue [Unknown]
  - Product label issue [Unknown]
  - Product quality issue [Unknown]
